FAERS Safety Report 13542877 (Version 3)
Quarter: 2017Q2

REPORT INFORMATION
  Report Type: Report from Study
  Country: None (occurrence: BR)
  Receive Date: 20170513
  Receipt Date: 20170601
  Transmission Date: 20170830
  Serious: Yes (Hospitalization, Other)
  Sender: FDA-Public Use
  Company Number: BR-ABBVIE-17K-020-1972189-00

PATIENT
  Age: 57 Year
  Sex: Female
  Weight: 48 kg

DRUGS (3)
  1. MELATONIN [Concomitant]
     Active Substance: MELATONIN
     Indication: SLEEP DISORDER THERAPY
     Route: 048
     Dates: start: 201703
  2. PURAN [Concomitant]
     Active Substance: LEVOTHYROXINE SODIUM
     Indication: THYROID DISORDER
     Route: 048
  3. HUMIRA [Suspect]
     Active Substance: ADALIMUMAB
     Indication: CROHN^S DISEASE
     Dosage: LOADING DOSE,WEEK 0.
     Route: 058
     Dates: start: 20170426, end: 20170426

REACTIONS (8)
  - Anal haemorrhage [Recovering/Resolving]
  - Gastric ulcer [Recovering/Resolving]
  - Fall [Recovered/Resolved]
  - Syncope [Recovered/Resolved]
  - Haematochezia [Recovering/Resolving]
  - Loss of consciousness [Unknown]
  - Loss of consciousness [Recovered/Resolved]
  - Asthenia [Unknown]

NARRATIVE: CASE EVENT DATE: 201705
